FAERS Safety Report 9732687 (Version 2)
Quarter: 2014Q2

REPORT INFORMATION
  Report Type: Spontaneous
  Country: US (occurrence: US)
  Receive Date: 20131205
  Receipt Date: 20140411
  Transmission Date: 20141212
  Serious: Yes (Other)
  Sender: FDA-Public Use
  Company Number: US-UCBSA-104448

PATIENT
  Age: 54 Year
  Sex: Male
  Weight: 54.9 kg

DRUGS (1)
  1. KEPPRA [Suspect]
     Indication: CONVULSION
     Dosage: 500 MG(STRENGTH)
     Route: 048
     Dates: start: 201303

REACTIONS (2)
  - Brain neoplasm [Unknown]
  - Speech disorder [Unknown]
